FAERS Safety Report 10488465 (Version 1)
Quarter: 2014Q3

REPORT INFORMATION
  Report Type: Spontaneous
  Country: AU (occurrence: None)
  Receive Date: 20140912
  Receipt Date: 20140912
  Transmission Date: 20150326
  Serious: Yes (Hospitalization)
  Sender: FDA-Public Use
  Company Number: GAM-297-14-AU

PATIENT
  Age: 38 Year
  Sex: Female

DRUGS (1)
  1. OCTAGAM IMMUNE GLOBULIN (HUMAN) [Suspect]
     Active Substance: HUMAN IMMUNOGLOBULIN G
     Indication: MYASTHENIA GRAVIS
     Route: 042
     Dates: start: 20140814, end: 20140814

REACTIONS (8)
  - Arthralgia [None]
  - Throat tightness [None]
  - Chills [None]
  - Infusion related reaction [None]
  - Condition aggravated [None]
  - Meningitis aseptic [None]
  - Fatigue [None]
  - Skin discolouration [None]

NARRATIVE: CASE EVENT DATE: 20140814
